FAERS Safety Report 8269381-5 (Version None)
Quarter: 2012Q2

REPORT INFORMATION
  Report Type: 
  Country: None (occurrence: None)
  Receive Date: 20120409
  Receipt Date: 20120402
  Transmission Date: 20120825
  Serious: Yes (Hospitalization)
  Sender: FDA-Public Use
  Company Number: US-FRI-1000029591

PATIENT
  Age: 60 Year
  Sex: Male
  Weight: 121 kg

DRUGS (11)
  1. MOBIC [Concomitant]
  2. GLYBURIDE [Concomitant]
     Indication: DIABETES MELLITUS
  3. SYMBICORT [Concomitant]
     Indication: CHRONIC OBSTRUCTIVE PULMONARY DISEASE
  4. SYMBICORT [Concomitant]
     Indication: ASTHMA
  5. PROAIR HFA [Concomitant]
     Indication: ASTHMA
  6. LOSARTAN POTASSIUM [Concomitant]
     Indication: HYPERTENSION
  7. ACTOS [Concomitant]
     Indication: DIABETES MELLITUS
  8. LIPITOR [Concomitant]
     Indication: BLOOD CHOLESTEROL INCREASED
  9. JANUMET [Concomitant]
     Indication: DIABETES MELLITUS
  10. PROAIR HFA [Concomitant]
     Indication: CHRONIC OBSTRUCTIVE PULMONARY DISEASE
  11. DALIRESP [Suspect]
     Indication: CHRONIC OBSTRUCTIVE PULMONARY DISEASE
     Dosage: 500 MCG
     Route: 048
     Dates: start: 20120201, end: 20120329

REACTIONS (1)
  - RENAL TUBULAR NECROSIS [None]
